FAERS Safety Report 17108961 (Version 3)
Quarter: 2020Q1

REPORT INFORMATION
  Report Type: Spontaneous
  Country: US (occurrence: US)
  Receive Date: 20191203
  Receipt Date: 20200318
  Transmission Date: 20200409
  Serious: Yes (Hospitalization)
  Sender: FDA-Public Use
  Company Number: US-CELGENEUS-USA-20191200180

PATIENT
  Age: 76 Year
  Sex: Female

DRUGS (22)
  1. PURE VITAMIN [Concomitant]
     Indication: MACULAR DEGENERATION
     Dosage: 1 TABLET
     Route: 048
     Dates: start: 2017
  2. APIXABAN [Concomitant]
     Active Substance: APIXABAN
     Indication: PULMONARY EMBOLISM
     Dosage: 10 MILLIGRAM
     Route: 048
     Dates: start: 20191112
  3. DEXAMETHASONE. [Concomitant]
     Active Substance: DEXAMETHASONE
     Indication: PREMEDICATION
     Dosage: 10 MILLIGRAM
     Route: 041
     Dates: start: 20191105
  4. SYSTANE ULTRA [Concomitant]
     Active Substance: POLYETHYLENE GLYCOL 400\PROPYLENE GLYCOL
     Indication: DRY EYE
     Dosage: 4 DROPS
     Route: 047
     Dates: start: 2015
  5. FEXOFENADINE HCL [Concomitant]
     Active Substance: FEXOFENADINE HYDROCHLORIDE
     Indication: RHINITIS ALLERGIC
     Dosage: 10 MILLIGRAM
     Route: 048
     Dates: start: 2017
  6. ALLOPURINOL. [Concomitant]
     Active Substance: ALLOPURINOL
     Indication: PROPHYLAXIS
     Dosage: 300 MILLIGRAM
     Route: 048
     Dates: start: 20191031, end: 20191105
  7. VENETOCLAX. [Suspect]
     Active Substance: VENETOCLAX
     Dosage: 200 MILLIGRAM
     Route: 048
     Dates: start: 20191106, end: 20191106
  8. VENETOCLAX. [Suspect]
     Active Substance: VENETOCLAX
     Dosage: 400 MILLIGRAM
     Route: 048
     Dates: start: 20191107, end: 20191128
  9. ENOXAPARIN SODIUM. [Concomitant]
     Active Substance: ENOXAPARIN SODIUM
     Indication: PULMONARY EMBOLISM
     Dosage: 160 MILLIGRAM
     Route: 058
     Dates: start: 20151024, end: 20191111
  10. ALLOPURINOL. [Concomitant]
     Active Substance: ALLOPURINOL
     Dosage: 300 MILLIGRAM
     Route: 048
     Dates: start: 20191112
  11. VIDAZA [Suspect]
     Active Substance: AZACITIDINE
     Indication: ACUTE MYELOID LEUKAEMIA
     Dosage: 75 MILLIGRAM/SQ. METER
     Route: 041
     Dates: start: 20191105
  12. VENETOCLAX. [Suspect]
     Active Substance: VENETOCLAX
     Indication: ACUTE MYELOID LEUKAEMIA
     Dosage: 100 MILLIGRAM
     Route: 048
     Dates: start: 20191105, end: 20191105
  13. FLU-ZONE HIGH DOSE [Concomitant]
     Indication: INFECTION PROPHYLAXIS
     Dosage: .5 MILLILITER
     Route: 030
     Dates: start: 20191106, end: 20191106
  14. EMLA [Concomitant]
     Active Substance: LIDOCAINE\PRILOCAINE
     Indication: CATHETER SITE PAIN
     Dosage: 1 APPLICATION
     Route: 061
     Dates: start: 20191105
  15. GRANISETRON [Concomitant]
     Active Substance: GRANISETRON
     Indication: PROPHYLAXIS OF NAUSEA AND VOMITING
     Dosage: 1000 MICROGRAM
     Route: 041
     Dates: start: 20191105
  16. VENETOCLAX. [Suspect]
     Active Substance: VENETOCLAX
     Dosage: 400 MILLIGRAM
     Route: 048
     Dates: start: 20191210
  17. ALLOPURINOL. [Concomitant]
     Active Substance: ALLOPURINOL
     Dosage: 1200 MILLIGRAM
     Route: 048
     Dates: start: 20191105, end: 20191112
  18. ACYCLOVIR. [Concomitant]
     Active Substance: ACYCLOVIR
     Indication: INFECTION PROPHYLAXIS
     Dosage: 800 MILLIGRAM
     Route: 048
     Dates: start: 20191105
  19. OXYGEN. [Concomitant]
     Active Substance: OXYGEN
     Indication: ACUTE RESPIRATORY FAILURE
     Dosage: 3 LPM
     Route: 045
     Dates: start: 20191024, end: 20191104
  20. EYE PROTECT VITAMIN [Concomitant]
     Indication: MACULAR DEGENERATION
     Dosage: 1 TABLET
     Route: 048
     Dates: start: 2015
  21. LEVOFLOXACIN. [Concomitant]
     Active Substance: LEVOFLOXACIN
     Indication: INFECTION PROPHYLAXIS
     Dosage: 500 MILLIGRAM
     Route: 048
     Dates: start: 20191113
  22. ONDANSETRON [Concomitant]
     Active Substance: ONDANSETRON
     Indication: PROPHYLAXIS OF NAUSEA AND VOMITING
     Dosage: 8 MILLIGRAM
     Route: 048
     Dates: start: 20191105

REACTIONS (2)
  - Febrile neutropenia [Recovered/Resolved]
  - Staphylococcal infection [Recovered/Resolved]

NARRATIVE: CASE EVENT DATE: 20191123
